FAERS Safety Report 4330681-2 (Version None)
Quarter: 2004Q1

REPORT INFORMATION
  Report Type: 
  Country: None (occurrence: None)
  Receive Date: 20040329
  Receipt Date: 20040315
  Transmission Date: 20041129
  Serious: Yes (Other)
  Sender: FDA-Public Use
  Company Number: 205280

PATIENT
  Age: 53 Year
  Sex: Female
  Weight: 72.1 kg

DRUGS (4)
  1. XOLAIR [Suspect]
     Indication: ASTHMA
     Dosage: 375 MG, Q2W, SUBCUTANEOUS
     Route: 058
     Dates: start: 20040122, end: 20040210
  2. SINGULAIR [Concomitant]
  3. PREDNISONE [Concomitant]
  4. ALBUTEROL (ALBUTEROL SULFATE, ALBUTEROL) [Concomitant]

REACTIONS (14)
  - ACUTE RESPIRATORY FAILURE [None]
  - ASTHMA [None]
  - BACK PAIN [None]
  - CHEST DISCOMFORT [None]
  - CREPITATIONS [None]
  - DIZZINESS [None]
  - DYSPNOEA [None]
  - FEELING HOT [None]
  - HEADACHE [None]
  - HEART RATE INCREASED [None]
  - MYALGIA [None]
  - PAIN [None]
  - VOMITING [None]
  - WHEEZING [None]
